FAERS Safety Report 9308562 (Version 6)
Quarter: 2014Q2

REPORT INFORMATION
  Report Type: Report from Study
  Country: CA (occurrence: CA)
  Receive Date: 20130524
  Receipt Date: 20140402
  Transmission Date: 20141212
  Serious: Yes (Death, Hospitalization, Other)
  Sender: FDA-Public Use
  Company Number: CA-JNJFOC-20130511058

PATIENT
  Age: 73 Year
  Sex: Female
  Weight: 64.68 kg

DRUGS (5)
  1. STELARA [Suspect]
     Indication: PSORIASIS
     Dosage: 0.5 ML INJECTION
     Route: 058
     Dates: start: 201204, end: 20130125
  2. METFORMIN [Concomitant]
     Indication: DIABETES MELLITUS
     Route: 065
  3. DIOVAN [Concomitant]
     Indication: DIABETES MELLITUS
     Route: 065
  4. SYNTHROID [Concomitant]
     Route: 065
  5. ASPIRIN [Concomitant]
     Route: 065

REACTIONS (4)
  - Cholangiocarcinoma [Fatal]
  - Retroperitoneal haemorrhage [Recovered/Resolved]
  - Pancreatic carcinoma [Recovered/Resolved with Sequelae]
  - Haematoma evacuation [Recovered/Resolved]
